FAERS Safety Report 4413160-3 (Version None)
Quarter: 2004Q3

REPORT INFORMATION
  Report Type: 
  Country: None (occurrence: None)
  Receive Date: 20040802
  Receipt Date: 20040726
  Transmission Date: 20050211
  Serious: Yes (Hospitalization)
  Sender: FDA-Public Use
  Company Number: US-GLAXOSMITHKLINE-A0519805A

PATIENT
  Sex: Female

DRUGS (4)
  1. AVANDIA [Suspect]
     Indication: ILL-DEFINED DISORDER
     Route: 048
  2. METFORMIN HCL [Concomitant]
  3. BETA BLOCKER [Concomitant]
  4. ACE INHIBITOR [Concomitant]

REACTIONS (1)
  - PLATELET COUNT DECREASED [None]
